FAERS Safety Report 17331603 (Version 1)
Quarter: 2020Q1

REPORT INFORMATION
  Report Type: Spontaneous
  Country: US (occurrence: US)
  Receive Date: 20200110
  Receipt Date: 20200110
  Transmission Date: 20200409
  Serious: Yes (Hospitalization)
  Sender: FDA-Public Use
  Company Number: None

PATIENT
  Age: 79 Year
  Sex: Female
  Weight: 69.8 kg

DRUGS (3)
  1. 5-FLUOROURACIL (5-FU) [Suspect]
     Active Substance: FLUOROURACIL
     Dates: end: 20070628
  2. ELLENCE [Suspect]
     Active Substance: EPIRUBICIN HYDROCHLORIDE
     Dates: end: 20070628
  3. CYCLOPHOSPHAMIDE. [Suspect]
     Active Substance: CYCLOPHOSPHAMIDE
     Dates: end: 20070628

REACTIONS (9)
  - Nervous system disorder [None]
  - Syncope [None]
  - Unresponsive to stimuli [None]
  - Dizziness [None]
  - Cerebellar ischaemia [None]
  - Fatigue [None]
  - Dehydration [None]
  - Cerebrovascular accident [None]
  - Ischaemic cerebral infarction [None]

NARRATIVE: CASE EVENT DATE: 20070730
